FAERS Safety Report 26212517 (Version 1)
Quarter: 2025Q4

REPORT INFORMATION
  Report Type: Report from Study
  Country: US (occurrence: US)
  Receive Date: 20251230
  Receipt Date: 20251230
  Transmission Date: 20260118
  Serious: No
  Sender: ACADIA PHARMACEUTICALS
  Company Number: US-ACADIA PHARMACEUTICALS INC.-ACA-2025-PIM-013610

PATIENT
  Sex: Male

DRUGS (9)
  1. NUPLAZID [Suspect]
     Active Substance: PIMAVANSERIN TARTRATE
     Indication: Parkinson^s disease
     Dosage: 34 MILLIGRAM, QD
     Route: 048
     Dates: start: 20210724
  2. ASPIRIN [Concomitant]
     Active Substance: ASPIRIN
  3. CARBIDOPA\LEVODOPA [Concomitant]
     Active Substance: CARBIDOPA\LEVODOPA
  4. FINASTERIDE [Concomitant]
     Active Substance: FINASTERIDE
  5. FISH OIL [Concomitant]
     Active Substance: FISH OIL
  6. INBRIJA [Concomitant]
     Active Substance: LEVODOPA
  7. NIACIN [Concomitant]
     Active Substance: NIACIN
  8. RASAGILINE [Concomitant]
     Active Substance: RASAGILINE
  9. VITAMIN D3 [Concomitant]
     Active Substance: CHOLECALCIFEROL
     Dosage: GUMM CHEWABLE 1000 UNIT

REACTIONS (2)
  - Product use issue [Unknown]
  - Product dose omission issue [Unknown]
